FAERS Safety Report 7260822-9 (Version None)
Quarter: 2011Q1

REPORT INFORMATION
  Report Type: 
  Country: None (occurrence: None)
  Receive Date: 20110128
  Receipt Date: 20110128
  Transmission Date: 20110831
  Serious: Yes (Other)
  Sender: FDA-Public Use
  Company Number: None

PATIENT
  Sex: Female
  Weight: 72.7 kg

DRUGS (1)
  1. TRIAD ALCOHOL PREP PADS TRIAD DISPOSABLES, INC. [Suspect]
     Indication: MULTIPLE SCLEROSIS
     Dosage: ONE REPLACEMENT - #2.50/BOX 1 PAD PER DAY TRIAD ALCOHOL PREP PADS EVERY DAY FOR THE PAST 5 YEARS

REACTIONS (10)
  - RESPIRATORY TRACT INFECTION [None]
  - PNEUMONIA [None]
  - ERYTHEMA [None]
  - URTICARIA [None]
  - SWELLING [None]
  - IMMUNE SYSTEM DISORDER [None]
  - PRURITUS [None]
  - INJECTION SITE HAEMATOMA [None]
  - SINUSITIS [None]
  - INFECTION [None]
